FAERS Safety Report 24962072 (Version 1)
Quarter: 2025Q1

REPORT INFORMATION
  Report Type: Spontaneous
  Country: AU (occurrence: AU)
  Receive Date: 20250212
  Receipt Date: 20250212
  Transmission Date: 20250408
  Serious: Yes (Hospitalization)
  Sender: GE HEALTHCARE
  Company Number: AU-GE HEALTHCARE-2025CSU001510

PATIENT
  Age: 29 Year
  Sex: Female
  Weight: 100 kg

DRUGS (1)
  1. OMNIPAQUE [Suspect]
     Active Substance: IOHEXOL
     Indication: Computerised tomogram abdomen
     Route: 042
     Dates: start: 20241010, end: 20241010

REACTIONS (5)
  - Obstructive airways disorder [Recovered/Resolved]
  - Loss of consciousness [Recovered/Resolved]
  - Cough [Recovered/Resolved]
  - Vomiting [Recovered/Resolved]
  - Rash [Recovered/Resolved]

NARRATIVE: CASE EVENT DATE: 20241010
